FAERS Safety Report 6341820-6 (Version None)
Quarter: 2009Q3

REPORT INFORMATION
  Report Type: 
  Country: None (occurrence: None)
  Receive Date: 20090904
  Receipt Date: 20090902
  Transmission Date: 20100115
  Serious: Yes (Other)
  Sender: FDA-Public Use
  Company Number: JP-ELI_LILLY_AND_COMPANY-JP200906004169

PATIENT
  Sex: Female

DRUGS (2)
  1. GEMZAR [Suspect]
     Dosage: UNK, UNK
     Route: 042
     Dates: end: 20090612
  2. GEMZAR [Suspect]
     Route: 042
     Dates: start: 20090710

REACTIONS (2)
  - ANGLE CLOSURE GLAUCOMA [None]
  - OPTIC DISC HAEMORRHAGE [None]
